FAERS Safety Report 24005636 (Version 1)
Quarter: 2024Q2

REPORT INFORMATION
  Report Type: Spontaneous
  Country: US (occurrence: US)
  Receive Date: 20240624
  Receipt Date: 20240624
  Transmission Date: 20240716
  Serious: No
  Sender: FDA-Public Use
  Company Number: US-PFIZER INC-202400197075

PATIENT
  Age: 58 Year
  Sex: Male
  Weight: 99.773 kg

DRUGS (7)
  1. INLYTA [Suspect]
     Active Substance: AXITINIB
     Indication: Renal cancer
     Dosage: 5 MG, 2X/DAY
     Route: 048
     Dates: start: 20240419
  2. INLYTA [Suspect]
     Active Substance: AXITINIB
     Dosage: TWO PILLS A DAY
     Route: 048
  3. INLYTA [Suspect]
     Active Substance: AXITINIB
     Dosage: ONE PILL A DAY
     Route: 048
  4. KEYTRUDA [Concomitant]
     Active Substance: PEMBROLIZUMAB
     Indication: Renal cancer
     Dosage: 25 MILLIGRAM EVERY 21 DAYS
     Route: 042
  5. CARVEDILOL [Concomitant]
     Active Substance: CARVEDILOL
     Indication: Therapeutic procedure
     Dosage: 12.5 MG
  6. ATORVASTATIN [Concomitant]
     Active Substance: ATORVASTATIN
     Indication: Therapeutic procedure
     Dosage: 80 MG, 1X/DAY
  7. LIPITOR [Concomitant]
     Active Substance: ATORVASTATIN CALCIUM
     Dosage: 80 MG

REACTIONS (6)
  - Genital rash [Not Recovered/Not Resolved]
  - Rash [Not Recovered/Not Resolved]
  - Genital blister [Not Recovered/Not Resolved]
  - Genital haemorrhage [Not Recovered/Not Resolved]
  - Fungal infection [Not Recovered/Not Resolved]
  - Pain [Unknown]

NARRATIVE: CASE EVENT DATE: 20240427
